FAERS Safety Report 15783193 (Version 2)
Quarter: 2019Q2

REPORT INFORMATION
  Report Type: Spontaneous
  Country: US (occurrence: US)
  Receive Date: 20190102
  Receipt Date: 20190422
  Transmission Date: 20190711
  Serious: No
  Sender: FDA-Public Use
  Company Number: US-SA-2018SA397122

PATIENT
  Age: 54 Year
  Sex: Male
  Weight: 88.9 kg

DRUGS (3)
  1. CLARITINE [Concomitant]
     Active Substance: LORATADINE
  2. BENADRYL [Concomitant]
     Active Substance: DIPHENHYDRAMINE HYDROCHLORIDE
  3. PRALUENT [Suspect]
     Active Substance: ALIROCUMAB
     Indication: TYPE V HYPERLIPIDAEMIA
     Dosage: 75 MG, QOW
     Route: 058
     Dates: start: 20181017

REACTIONS (4)
  - Sinusitis [Recovered/Resolved]
  - Musculoskeletal discomfort [Recovered/Resolved]
  - Secretion discharge [Recovered/Resolved]
  - Rhinorrhoea [Recovered/Resolved]

NARRATIVE: CASE EVENT DATE: 20181017
